FAERS Safety Report 25939700 (Version 1)
Quarter: 2025Q4

REPORT INFORMATION
  Report Type: Spontaneous
  Country: CN (occurrence: CN)
  Receive Date: 20251020
  Receipt Date: 20251020
  Transmission Date: 20260118
  Serious: Yes (Hospitalization)
  Sender: GE HEALTHCARE
  Company Number: None

PATIENT
  Age: 56 Year
  Sex: Female

DRUGS (1)
  1. OMNIPAQUE [Suspect]
     Active Substance: IOHEXOL
     Indication: Computerised tomogram thorax
     Dosage: 35 GM, TOTAL
     Route: 042
     Dates: start: 20250717, end: 20250717

REACTIONS (5)
  - Abnormal sensation in eye [Unknown]
  - Ocular hyperaemia [Unknown]
  - Eye swelling [Unknown]
  - Larynx irritation [Unknown]
  - Laryngospasm [Unknown]

NARRATIVE: CASE EVENT DATE: 20250717
